FAERS Safety Report 5805513-3 (Version None)
Quarter: 2008Q4

REPORT INFORMATION
  Report Type: 
  Country: None (occurrence: None)
  Receive Date: 20080710
  Receipt Date: 20080630
  Transmission Date: 20090506
  Serious: Yes (Hospitalization)
  Sender: FDA-Public Use
  Company Number: JP-NOVOPROD-276886

PATIENT
  Age: 19 Year
  Sex: Female
  Weight: 43 kg

DRUGS (5)
  1. LEVEMIR [Suspect]
     Indication: TYPE 1 DIABETES MELLITUS
     Dosage: 25 IU, QD
     Route: 058
     Dates: start: 20080313
  2. NOVOLOG [Suspect]
     Indication: TYPE 1 DIABETES MELLITUS
     Dosage: 8+6+10 IU
     Dates: start: 20070529, end: 20071201
  3. NOVOLOG [Suspect]
     Dosage: 25 IU, QD
     Route: 058
     Dates: start: 20071201
  4. NOVOLIN N [Suspect]
     Indication: TYPE 1 DIABETES MELLITUS
     Dosage: 2+0+4IU
     Dates: start: 20070529, end: 20071201
  5. NOVOLIN N [Suspect]
     Dosage: 14 IU, QD
     Route: 058
     Dates: start: 20071201, end: 20080312

REACTIONS (3)
  - ANTI-INSULIN ANTIBODY POSITIVE [None]
  - DIABETES MELLITUS INADEQUATE CONTROL [None]
  - HYPERGLYCAEMIA [None]
